FAERS Safety Report 12833069 (Version 1)
Quarter: 2016Q4

REPORT INFORMATION
  Report Type: Spontaneous
  Country: GB (occurrence: US)
  Receive Date: 20161010
  Receipt Date: 20161010
  Transmission Date: 20170207
  Serious: Yes (Hospitalization, Other)
  Sender: FDA-Public Use
  Company Number: US-TEVA-698875USA

PATIENT
  Age: 37 Year
  Sex: Male

DRUGS (10)
  1. ACETAMINOPHEN. [Concomitant]
     Active Substance: ACETAMINOPHEN
     Indication: CROHN^S DISEASE
     Route: 048
     Dates: start: 2007
  2. PREDNISONE. [Concomitant]
     Active Substance: PREDNISONE
     Indication: CROHN^S DISEASE
     Route: 048
     Dates: start: 20151028
  3. ETROLIZUMAB [Concomitant]
     Active Substance: ETROLIZUMAB
     Route: 058
     Dates: start: 20160310
  4. LISINOPRIL. [Suspect]
     Active Substance: LISINOPRIL
     Indication: IGA NEPHROPATHY
     Dates: start: 20160411, end: 20160419
  5. ONDANSETRON [Concomitant]
     Active Substance: ONDANSETRON
     Indication: CROHN^S DISEASE
     Route: 048
     Dates: start: 201212
  6. PANTOPRAZOLE [Concomitant]
     Active Substance: PANTOPRAZOLE SODIUM
     Route: 048
     Dates: start: 20150601
  7. MULTIVITAMIN [Concomitant]
     Active Substance: VITAMINS
  8. PERCOCET [Concomitant]
     Active Substance: ACETAMINOPHEN\OXYCODONE HYDROCHLORIDE
     Indication: CROHN^S DISEASE
     Route: 048
     Dates: start: 20150831
  9. LISINOPRIL. [Suspect]
     Active Substance: LISINOPRIL
     Dates: start: 20160411, end: 20160419
  10. ETROLIZUMAB [Concomitant]
     Active Substance: ETROLIZUMAB
     Indication: CROHN^S DISEASE
     Route: 058
     Dates: start: 20160310, end: 20160411

REACTIONS (3)
  - Dehydration [Recovered/Resolved]
  - Gastroenteritis [Recovered/Resolved]
  - Acute kidney injury [Recovered/Resolved]

NARRATIVE: CASE EVENT DATE: 20160416
